FAERS Safety Report 13277722 (Version 1)
Quarter: 2017Q1

REPORT INFORMATION
  Report Type: Spontaneous
  Country: US (occurrence: US)
  Receive Date: 20170228
  Receipt Date: 20170228
  Transmission Date: 20170428
  Serious: No
  Sender: FDA-Public Use
  Company Number: US-SHIRE-US201702365

PATIENT
  Age: 27 Year
  Sex: Male
  Weight: 48.25 kg

DRUGS (1)
  1. ELAPRASE [Suspect]
     Active Substance: IDURSULFASE
     Indication: MUCOPOLYSACCHARIDOSIS II
     Dosage: 24 MG, 1X/WEEK
     Route: 041
     Dates: start: 20140730

REACTIONS (3)
  - Nasal congestion [Unknown]
  - Malaise [Unknown]
  - Cough [Unknown]

NARRATIVE: CASE EVENT DATE: 20170124
